FAERS Safety Report 8339517-6 (Version None)
Quarter: 2012Q2

REPORT INFORMATION
  Report Type: 
  Country: None (occurrence: None)
  Receive Date: 20120507
  Receipt Date: 20120429
  Transmission Date: 20120825
  Serious: Yes (Other)
  Sender: FDA-Public Use
  Company Number: PHHY2012DE036377

PATIENT
  Age: 32 Year
  Sex: Male

DRUGS (5)
  1. CYCLOSPORINE [Suspect]
  2. DEXAMETHASONE [Concomitant]
  3. PLASMAPHERESIS BLOOD-PACK SYSTEM INFUSION [Concomitant]
     Dosage: UNK UKN, UNK
  4. CYCLOPHOSPHAMIDE [Concomitant]
  5. MYCOPHENOLATE MOFETIL (CELLCEPT) [Concomitant]

REACTIONS (5)
  - IMMUNOGLOBULINS INCREASED [None]
  - NERVOUS SYSTEM DISORDER [None]
  - LIGHT CHAIN ANALYSIS INCREASED [None]
  - PLEURAL EFFUSION [None]
  - GENERALISED OEDEMA [None]
